FAERS Safety Report 24048832 (Version 1)
Quarter: 2024Q3

REPORT INFORMATION
  Report Type: Spontaneous
  Country: US (occurrence: US)
  Receive Date: 20240704
  Receipt Date: 20240704
  Transmission Date: 20241016
  Serious: Yes (Death)
  Sender: ALVOGEN
  Company Number: US-ALVOGEN-2024094979

PATIENT
  Sex: Female

DRUGS (2)
  1. LOREEV XR [Suspect]
     Active Substance: LORAZEPAM
     Indication: Product used for unknown indication
     Dosage: STRENGTH: 2MG
  2. LORAZEPAM [Concomitant]
     Active Substance: LORAZEPAM
     Indication: Product used for unknown indication
     Dosage: STRENGTH: 0.5MG?IMMEDIATE RELEASE (IR)

REACTIONS (1)
  - Death [Fatal]
